FAERS Safety Report 23876098 (Version 1)
Quarter: 2024Q2

REPORT INFORMATION
  Report Type: Spontaneous
  Country: US (occurrence: US)
  Receive Date: 20240520
  Receipt Date: 20240520
  Transmission Date: 20240716
  Serious: No
  Sender: FDA-Public Use
  Company Number: US-IMP-2024000217

PATIENT
  Sex: Female

DRUGS (2)
  1. FRESHKOTE PRESERVATIVE FREE LUBRICATING EYE DROPS [Suspect]
     Active Substance: POLYVINYL ALCOHOL\POVIDONE
     Indication: Corneal abrasion
     Dosage: EVERY HOUR WHILE AWAKE
     Route: 047
     Dates: start: 20240308
  2. REFRESH CELLUVISC [Suspect]
     Active Substance: CARBOXYMETHYLCELLULOSE SODIUM
     Indication: Corneal abrasion
     Dosage: EVERY HOUR WHILE AWAKE
     Route: 047
     Dates: start: 20240308

REACTIONS (1)
  - Off label use [Unknown]
